FAERS Safety Report 10435994 (Version 1)
Quarter: 2014Q3

REPORT INFORMATION
  Report Type: Spontaneous
  Country: US (occurrence: None)
  Receive Date: 20140905
  Receipt Date: 20140905
  Transmission Date: 20150326
  Serious: Yes (Life-Threatening, Hospitalization)
  Sender: FDA-Public Use
  Company Number: None

PATIENT
  Age: 67 Year
  Sex: Male
  Weight: 81.2 kg

DRUGS (16)
  1. CLOZAPINE. [Suspect]
     Active Substance: CLOZAPINE
     Indication: SCHIZOPHRENIA, PARANOID TYPE
     Dosage: 1 TABLET, BID, ORAL
     Route: 048
     Dates: start: 20140728, end: 20140814
  2. DOCUSATE [Concomitant]
     Active Substance: DOCUSATE
  3. IBUPROFEN. [Concomitant]
     Active Substance: IBUPROFEN
  4. LORAZEPAM. [Concomitant]
     Active Substance: LORAZEPAM
  5. SIMVASTATIN. [Concomitant]
     Active Substance: SIMVASTATIN
  6. MGOH [Concomitant]
  7. ASA [Concomitant]
     Active Substance: ASPIRIN
  8. RISPERIDONE. [Concomitant]
     Active Substance: RISPERIDONE
  9. NACL [Concomitant]
     Active Substance: SODIUM CHLORIDE
  10. ATENOLOL. [Concomitant]
     Active Substance: ATENOLOL
  11. DIVALPROEX SR [Concomitant]
  12. GUAIFENESINE [Concomitant]
  13. HCTZ [Concomitant]
     Active Substance: HYDROCHLOROTHIAZIDE
  14. LOSARTAN [Concomitant]
     Active Substance: LOSARTAN
  15. CLOZAPINE. [Suspect]
     Active Substance: CLOZAPINE
     Indication: AGITATION
     Dosage: 1 TABLET, BID, ORAL
     Route: 048
     Dates: start: 20140728, end: 20140814
  16. OMEPRAZOLE. [Concomitant]
     Active Substance: OMEPRAZOLE

REACTIONS (3)
  - Hypotension [None]
  - Pulse absent [None]
  - Cardiac arrest [None]

NARRATIVE: CASE EVENT DATE: 20140814
